FAERS Safety Report 23989369 (Version 1)
Quarter: 2024Q2

REPORT INFORMATION
  Report Type: Spontaneous
  Country: MX (occurrence: MX)
  Receive Date: 20240619
  Receipt Date: 20240619
  Transmission Date: 20240716
  Serious: Yes (Hospitalization, Other)
  Sender: FDA-Public Use
  Company Number: MX-Accord-430507

PATIENT
  Age: 59 Year
  Sex: Male

DRUGS (3)
  1. BORTEZOMIB [Suspect]
     Active Substance: BORTEZOMIB
     Indication: Plasma cell myeloma
     Dosage: STRENGTH: 3.5 MG
     Route: 042
  2. DEXAMETHASONE [Concomitant]
     Active Substance: DEXAMETHASONE
     Indication: Immune system disorder
     Route: 042
     Dates: start: 20240403, end: 20240406
  3. THALIDOMIDE [Concomitant]
     Active Substance: THALIDOMIDE
     Indication: Neoplasm malignant
     Route: 048
     Dates: start: 20240404, end: 20240425

REACTIONS (3)
  - Acute kidney injury [Unknown]
  - Hypercalcaemia [Unknown]
  - Pain [Unknown]

NARRATIVE: CASE EVENT DATE: 20240417
